FAERS Safety Report 9115757 (Version 2)
Quarter: 2013Q3

REPORT INFORMATION
  Report Type: Spontaneous
  Country: JP (occurrence: JP)
  Receive Date: 20130225
  Receipt Date: 20130820
  Transmission Date: 20140515
  Serious: Yes (Hospitalization, Other)
  Sender: FDA-Public Use
  Company Number: JP-BAYER-2013-021582

PATIENT
  Age: 70 Year
  Sex: Male

DRUGS (10)
  1. DACARBAZINE [Suspect]
     Indication: METASTATIC MALIGNANT MELANOMA
     Dosage: 1513 MG (EVERY 3 WEEKS)
     Route: 043
     Dates: start: 20121024, end: 20121224
  2. MDX-010 [Suspect]
     Indication: METASTATIC MALIGNANT MELANOMA
     Dosage: 759 MG (EVERY 3 WEEKS)
     Route: 043
     Dates: start: 20121024, end: 20121226
  3. AMLODIPINE [Concomitant]
     Dosage: UNK
     Dates: start: 199901
  4. OLOPATADINE HYDROCHLORIDE [Concomitant]
     Dosage: UNK
     Dates: start: 20121211
  5. PREDNISOLONE [Concomitant]
     Indication: DIARRHOEA
     Dosage: 20 MG DAILY
     Route: 048
  6. PREDNISOLONE [Concomitant]
     Indication: DIARRHOEA
     Dosage: 15 MG DAILY
     Route: 048
     Dates: start: 20121226
  7. PREDNISOLONE [Concomitant]
     Indication: DIARRHOEA
     Dosage: 60 MG DAILY
     Route: 048
     Dates: start: 20121228
  8. PREDNISOLONE [Concomitant]
     Indication: DIARRHOEA
     Dosage: 50 MG DAILY
     Route: 048
     Dates: start: 20130109
  9. PREDNISOLONE [Concomitant]
     Indication: DIARRHOEA
     Dosage: 60 MG DAILY
     Route: 048
     Dates: start: 20130116
  10. MYCOPHENOLATE MOFETIL [Concomitant]
     Dosage: UNK
     Dates: start: 20130205, end: 20130304

REACTIONS (1)
  - Alanine aminotransferase increased [Recovered/Resolved]
